FAERS Safety Report 8280604-9 (Version None)
Quarter: 2012Q2

REPORT INFORMATION
  Report Type: 
  Country: None (occurrence: None)
  Receive Date: 20120412
  Receipt Date: 20120222
  Transmission Date: 20120825
  Serious: No
  Sender: FDA-Public Use
  Company Number: US-ASTRAZENECA-2012SE12317

PATIENT
  Age: 61 Year
  Sex: Female
  Weight: 74.8 kg

DRUGS (16)
  1. NEXIUM [Suspect]
     Route: 048
     Dates: start: 20110401
  2. NEXIUM [Suspect]
     Indication: GASTROOESOPHAGEAL REFLUX DISEASE
     Route: 048
     Dates: start: 19900101
  3. METFORMIN HCL [Concomitant]
  4. IRON [Concomitant]
     Dosage: BID
  5. SYMBICORT [Suspect]
     Indication: CHRONIC OBSTRUCTIVE PULMONARY DISEASE
     Route: 055
  6. CLONIDINE [Concomitant]
  7. NEXIUM [Suspect]
     Route: 048
     Dates: start: 20110401
  8. LISINOPRIL [Concomitant]
  9. CITALOPRAM HYDROBROMIDE [Concomitant]
  10. ALBUTEROL SULFATE AUTOHALER [Concomitant]
  11. LOSARTAN POTASSIUM [Concomitant]
  12. NEXIUM [Suspect]
     Indication: BASEDOW'S DISEASE
     Route: 048
     Dates: start: 19900101
  13. ASCORBIC ACID [Concomitant]
  14. OXAPROZIN [Concomitant]
  15. BAYER [Concomitant]
  16. HYDROCODONE [Concomitant]

REACTIONS (6)
  - DIABETES MELLITUS [None]
  - OFF LABEL USE [None]
  - PNEUMONIA [None]
  - POLYARTHRITIS [None]
  - BASEDOW'S DISEASE [None]
  - CHRONIC OBSTRUCTIVE PULMONARY DISEASE [None]
